FAERS Safety Report 12603094 (Version 1)
Quarter: 2016Q3

REPORT INFORMATION
  Report Type: Report from Study
  Country: IT (occurrence: IT)
  Receive Date: 20160728
  Receipt Date: 20160728
  Transmission Date: 20161109
  Serious: Yes (Other)
  Sender: FDA-Public Use
  Company Number: IT-009507513-1603ITA006405

PATIENT
  Age: 50 Year
  Sex: Female

DRUGS (5)
  1. COPEGUS [Suspect]
     Active Substance: RIBAVIRIN
     Dosage: 1000 MG, QD
     Route: 048
     Dates: start: 20150225, end: 20150414
  2. BOCEPREVIR [Suspect]
     Active Substance: BOCEPREVIR
     Indication: CHRONIC HEPATITIS C
     Dosage: 800 MG, TID
     Route: 048
     Dates: start: 20141125, end: 20150414
  3. PEGASYS [Suspect]
     Active Substance: PEGINTERFERON ALFA-2A
     Indication: CHRONIC HEPATITIS C
     Dosage: 180 MG, QW
     Route: 058
     Dates: start: 20141028, end: 20150414
  4. COPEGUS [Suspect]
     Active Substance: RIBAVIRIN
     Indication: CHRONIC HEPATITIS C
     Dosage: 600 MG, BID
     Route: 048
     Dates: start: 20141028, end: 20141223
  5. COPEGUS [Suspect]
     Active Substance: RIBAVIRIN
     Dosage: 600 MG, QD
     Route: 048
     Dates: start: 20141223, end: 20150225

REACTIONS (3)
  - Neutropenia [Recovered/Resolved]
  - Anaemia [Recovered/Resolved]
  - Migraine [Recovered/Resolved]

NARRATIVE: CASE EVENT DATE: 20141205
